FAERS Safety Report 22258730 (Version 4)
Quarter: 2024Q1

REPORT INFORMATION
  Report Type: Spontaneous
  Country: US (occurrence: US)
  Receive Date: 20230427
  Receipt Date: 20240118
  Transmission Date: 20240410
  Serious: Yes (Death, Hospitalization, Other)
  Sender: FDA-Public Use
  Company Number: US-JNJFOC-20230440961

PATIENT
  Age: 14 Year
  Sex: Male

DRUGS (4)
  1. AVOBENZONE\HOMOSALATE\OCTISALATE\OCTOCRYLENE OR AVOBENZONE\HOMOSALATE\ [Suspect]
     Active Substance: AVOBENZONE\HOMOSALATE\OCTISALATE\OCTOCRYLENE OR AVOBENZONE\HOMOSALATE\OCTISALATE\OCTOCRYLENE\OXYBENZ
     Indication: Product used for unknown indication
     Dosage: SPRAYING THE PRODUCT LIBERALLY 2-3 TIMES PER GAME/PRACTICE, WHICH OCCURRED 4-5 TIMES PER WEEK, OVER
     Route: 061
     Dates: start: 2009
  2. AVOBENZONE, HOMOSALATE, OCTISALATE, OCTOCRYLENE [Suspect]
     Active Substance: AVOBENZONE\HOMOSALATE\OCTISALATE\OCTOCRYLENE
     Indication: Product used for unknown indication
     Dosage: SPRAYING THE PRODUCT LIBERALLY 2-3 TIMES PER GAME/PRACTICE, WHICH OCCURRED 4-5 TIMES PER WEEK, OVER
     Route: 061
     Dates: start: 2009
  3. NEUTROGENA BEACH DEFENSE WATER PLUS SUN PROTECTION SUNSCREEN BROAD SPE [Suspect]
     Active Substance: AVOBENZONE\HOMOSALATE\OCTISALATE\OCTOCRYLENE
     Indication: Product used for unknown indication
     Dosage: LIBERALLY APPLIED TO BODY PER THE USUAL CUSTOM AND PER THE DIRECTIONS ON THE PRODUCT
     Route: 061
  4. AVOBENZONE\HOMOSALATE\OCTISALATE\OCTOCRYLENE [Suspect]
     Active Substance: AVOBENZONE\HOMOSALATE\OCTISALATE\OCTOCRYLENE
     Indication: Product used for unknown indication
     Dosage: SPRAYING THE PRODUCT LIBERALLY 2-3 TIMES PER GAME/PRACTICE, WHICH OCCURRED 4-5 TIMES PER WEEK, OVER
     Route: 061
     Dates: start: 2009

REACTIONS (3)
  - Acute myeloid leukaemia [Fatal]
  - Exposure to toxic agent [Fatal]
  - Product contamination chemical [Fatal]

NARRATIVE: CASE EVENT DATE: 20210416
